FAERS Safety Report 14859622 (Version 1)
Quarter: 2018Q2

REPORT INFORMATION
  Report Type: Spontaneous
  Country: US (occurrence: US)
  Receive Date: 20180508
  Receipt Date: 20180508
  Transmission Date: 20180711
  Serious: No
  Sender: FDA-Public Use
  Company Number: US-PFIZER INC-2018182598

PATIENT
  Age: 50 Year
  Sex: Female

DRUGS (2)
  1. GABAPENTIN. [Suspect]
     Active Substance: GABAPENTIN
     Indication: NEUROPATHY PERIPHERAL
     Dosage: 300MG CAPSULE, TAKE ONE CAPSULE BY MOUTH TWICE A DAY. SHE ONLY TAKES IT ONCE AT NIGHT
     Route: 048
     Dates: start: 2001
  2. GABAPENTIN. [Suspect]
     Active Substance: GABAPENTIN
     Dosage: 100 MG, CAPSULE, TAKE ONE CAPSULE BY MOUTH TWICE A DAY
     Route: 048
     Dates: start: 2001

REACTIONS (4)
  - Somnolence [Not Recovered/Not Resolved]
  - Cognitive disorder [Unknown]
  - Product use in unapproved indication [Unknown]
  - Intentional product use issue [Unknown]
